FAERS Safety Report 12169541 (Version 2)
Quarter: 2016Q2

REPORT INFORMATION
  Report Type: Spontaneous
  Country: US (occurrence: US)
  Receive Date: 20160310
  Receipt Date: 20160414
  Transmission Date: 20160815
  Serious: No
  Sender: FDA-Public Use
  Company Number: US-GLAXOSMITHKLINE-US2016031799

PATIENT
  Sex: Female

DRUGS (6)
  1. PEPCID [Concomitant]
     Active Substance: FAMOTIDINE
  2. RED YEAST RICE [Concomitant]
     Active Substance: DIETARY SUPPLEMENT
  3. BIOTIN [Concomitant]
     Active Substance: BIOTIN
  4. ADVAIR DISKUS [Suspect]
     Active Substance: FLUTICASONE PROPIONATE\SALMETEROL XINAFOATE
     Indication: ASTHMA
     Dosage: 1 PUFF(S), QD
     Route: 055
  5. ALBUTEROL INHALER [Concomitant]
     Active Substance: ALBUTEROL
  6. CALCIUM [Concomitant]
     Active Substance: CALCIUM

REACTIONS (3)
  - Drug ineffective [Not Recovered/Not Resolved]
  - Dyspnoea [Not Recovered/Not Resolved]
  - Product quality issue [Unknown]
